FAERS Safety Report 24611071 (Version 1)
Quarter: 2024Q4

REPORT INFORMATION
  Report Type: Spontaneous
  Country: CO (occurrence: CO)
  Receive Date: 20241113
  Receipt Date: 20241113
  Transmission Date: 20250115
  Serious: Yes (Hospitalization)
  Sender: ACCORD
  Company Number: CO-Accord-455565

PATIENT
  Age: 4 Year
  Sex: Male

DRUGS (3)
  1. ETOPOSIDE [Suspect]
     Active Substance: ETOPOSIDE
     Indication: Juvenile chronic myelomonocytic leukaemia
  2. VINCRISTINE [Suspect]
     Active Substance: VINCRISTINE
     Indication: Juvenile chronic myelomonocytic leukaemia
  3. CYTARABINE [Suspect]
     Active Substance: CYTARABINE
     Indication: Juvenile chronic myelomonocytic leukaemia

REACTIONS (1)
  - Drug reaction with eosinophilia and systemic symptoms [Recovered/Resolved]
